FAERS Safety Report 7821041-8 (Version None)
Quarter: 2011Q4

REPORT INFORMATION
  Report Type: 
  Country: None (occurrence: None)
  Receive Date: 20111018
  Receipt Date: 20111017
  Transmission Date: 20120403
  Serious: Yes (Hospitalization)
  Sender: FDA-Public Use
  Company Number: US-BRISTOL-MYERS SQUIBB COMPANY-13967187

PATIENT
  Age: 52 Year
  Sex: Female
  Weight: 57 kg

DRUGS (2)
  1. ERBITUX [Suspect]
     Indication: HEAD AND NECK CANCER
     Dosage: START DATE OF FIRST COURSE: 18-SEP-2007
     Route: 042
     Dates: start: 20071009, end: 20071009
  2. CISPLATIN [Suspect]
     Indication: HEAD AND NECK CANCER
     Dosage: START DATE OF FIRST COURSE: 18-SEP-2007
     Route: 042
     Dates: start: 20070918, end: 20070918

REACTIONS (12)
  - NEUTROPHIL COUNT DECREASED [None]
  - WEIGHT DECREASED [None]
  - DEHYDRATION [None]
  - HYPOKALAEMIA [None]
  - STOMATITIS [None]
  - HYPONATRAEMIA [None]
  - HYPOALBUMINAEMIA [None]
  - HYPOMAGNESAEMIA [None]
  - WHITE BLOOD CELL COUNT DECREASED [None]
  - ORAL PAIN [None]
  - HYPOCALCAEMIA [None]
  - ANAEMIA [None]
